FAERS Safety Report 12122033 (Version 1)
Quarter: 2016Q1

REPORT INFORMATION
  Report Type: Spontaneous
  Country: US (occurrence: US)
  Receive Date: 20160226
  Receipt Date: 20160226
  Transmission Date: 20160526
  Serious: No
  Sender: FDA-Public Use
  Company Number: US-ALLERGAN-1503948US

PATIENT
  Sex: Female

DRUGS (4)
  1. REFRESH OPTIVE [Suspect]
     Active Substance: CARBOXYMETHYLCELLULOSE SODIUM\GLYCERIN
     Indication: DRY EYE
     Route: 047
  2. RESTASIS [Concomitant]
     Active Substance: CYCLOSPORINE
     Indication: DRY EYE
  3. REFRESH OPTIVE ADVANCED [Suspect]
     Active Substance: CARBOXYMETHYLCELLULOSE SODIUM\GLYCERIN\POLYSORBATE 80
     Indication: DRY EYE
     Route: 047
  4. REFRESH CELLUVISC [Suspect]
     Active Substance: CARBOXYMETHYLCELLULOSE SODIUM
     Indication: DRY EYE
     Route: 047

REACTIONS (3)
  - Ocular hyperaemia [Unknown]
  - Eye irritation [Unknown]
  - Vision blurred [Unknown]
